FAERS Safety Report 5911888-7 (Version None)
Quarter: 2008Q4

REPORT INFORMATION
  Report Type: 
  Country: None (occurrence: None)
  Receive Date: 20081003
  Receipt Date: 20080916
  Transmission Date: 20090506
  Serious: Yes (Hospitalization, Other)
  Sender: FDA-Public Use
  Company Number: 2008BI024827

PATIENT
  Age: 43 Year
  Sex: Male

DRUGS (19)
  1. ZEVALIN [Suspect]
     Indication: NON-HODGKIN'S LYMPHOMA
     Dosage: 0.4 MCI/KG/ 1X; IV
     Route: 042
     Dates: start: 20080606, end: 20080606
  2. ZEVALIN [Suspect]
  3. RITUXIMAB (CON.) [Concomitant]
  4. FLUDARABINE (CON.) [Concomitant]
  5. MELPHALAN (CON.) [Concomitant]
  6. THIOTEPA (CON.) [Concomitant]
  7. ACICLOVIR (CON.) [Concomitant]
  8. FLUCONAZOL (CON.) [Concomitant]
  9. AMBINEB (CON.) [Concomitant]
  10. CICLOSPORINA A (CON.) [Concomitant]
  11. LORAZEPAM (CON.) [Concomitant]
  12. FOLIC ACID (CON.) [Concomitant]
  13. HIDROPOLIVIT (CON.) [Concomitant]
  14. URSOCHOL (CON.) [Concomitant]
  15. CODEINE PHOSPHATE (CON.) [Concomitant]
  16. PENTAMIDINE (CON.) [Concomitant]
  17. ZYRTEC (CON.) [Concomitant]
  18. CORTICOIDS (PREV.) [Concomitant]
  19. CORTICOIDS (PREV.) [Concomitant]

REACTIONS (2)
  - NEUTROPENIA [None]
  - THROMBOCYTOPENIA [None]
